FAERS Safety Report 23336195 (Version 4)
Quarter: 2024Q1

REPORT INFORMATION
  Report Type: Other
  Country: JP (occurrence: JP)
  Receive Date: 20231225
  Receipt Date: 20240122
  Transmission Date: 20240410
  Serious: Yes (Hospitalization)
  Sender: FDA-Public Use
  Company Number: JP-CHUGAI-2023026786

PATIENT
  Age: 70 Year
  Sex: Male
  Weight: 50.1 kg

DRUGS (41)
  1. POLIVY [Suspect]
     Active Substance: POLATUZUMAB VEDOTIN-PIIQ
     Indication: Diffuse large B-cell lymphoma
     Route: 065
     Dates: start: 20230414, end: 20230414
  2. POLIVY [Suspect]
     Active Substance: POLATUZUMAB VEDOTIN-PIIQ
     Route: 065
     Dates: start: 20230505, end: 20230505
  3. POLIVY [Suspect]
     Active Substance: POLATUZUMAB VEDOTIN-PIIQ
     Route: 065
     Dates: start: 20230526, end: 20230526
  4. POLIVY [Suspect]
     Active Substance: POLATUZUMAB VEDOTIN-PIIQ
     Route: 065
     Dates: start: 20230616, end: 20230616
  5. POLIVY [Suspect]
     Active Substance: POLATUZUMAB VEDOTIN-PIIQ
     Route: 065
     Dates: start: 20230707, end: 20230707
  6. POLIVY [Suspect]
     Active Substance: POLATUZUMAB VEDOTIN-PIIQ
     Route: 065
     Dates: start: 20230728, end: 20230728
  7. RITUXIMAB [Concomitant]
     Active Substance: RITUXIMAB
     Indication: Diffuse large B-cell lymphoma
     Dosage: 600 MILLIGRAM
     Route: 065
     Dates: start: 20230414, end: 20230414
  8. RITUXIMAB [Concomitant]
     Active Substance: RITUXIMAB
     Route: 065
     Dates: start: 20230505, end: 20230505
  9. RITUXIMAB [Concomitant]
     Active Substance: RITUXIMAB
     Route: 065
     Dates: start: 20230526, end: 20230526
  10. RITUXIMAB [Concomitant]
     Active Substance: RITUXIMAB
     Route: 065
     Dates: start: 20230616, end: 20230616
  11. RITUXIMAB [Concomitant]
     Active Substance: RITUXIMAB
     Route: 065
     Dates: start: 20230707, end: 20230707
  12. RITUXIMAB [Concomitant]
     Active Substance: RITUXIMAB
     Route: 065
     Dates: start: 20230728, end: 20230728
  13. RITUXIMAB [Concomitant]
     Active Substance: RITUXIMAB
     Route: 065
     Dates: start: 20230912, end: 20230912
  14. RITUXIMAB [Concomitant]
     Active Substance: RITUXIMAB
     Route: 065
     Dates: start: 20230828, end: 20230828
  15. CYCLOPHOSPHAMIDE [Concomitant]
     Active Substance: CYCLOPHOSPHAMIDE
     Indication: Diffuse large B-cell lymphoma
     Dosage: 1100 MILLIGRAM
     Route: 065
     Dates: start: 20230414, end: 20230414
  16. CYCLOPHOSPHAMIDE [Concomitant]
     Active Substance: CYCLOPHOSPHAMIDE
     Route: 065
     Dates: start: 20230505, end: 20230505
  17. CYCLOPHOSPHAMIDE [Concomitant]
     Active Substance: CYCLOPHOSPHAMIDE
     Route: 065
     Dates: start: 20230526, end: 20230526
  18. CYCLOPHOSPHAMIDE [Concomitant]
     Active Substance: CYCLOPHOSPHAMIDE
     Route: 065
     Dates: start: 20230616, end: 20230616
  19. CYCLOPHOSPHAMIDE [Concomitant]
     Active Substance: CYCLOPHOSPHAMIDE
     Route: 065
     Dates: start: 20230707, end: 20230707
  20. CYCLOPHOSPHAMIDE [Concomitant]
     Active Substance: CYCLOPHOSPHAMIDE
     Route: 065
     Dates: start: 20230728, end: 20230728
  21. DOXORUBICIN HYDROCHLORIDE [Concomitant]
     Active Substance: DOXORUBICIN HYDROCHLORIDE
     Indication: Diffuse large B-cell lymphoma
     Dosage: 70 MILLIGRAM, SINGLE
     Route: 065
     Dates: start: 20230414, end: 20230414
  22. DOXORUBICIN HYDROCHLORIDE [Concomitant]
     Active Substance: DOXORUBICIN HYDROCHLORIDE
     Dosage: 50 MILLIGRAM
     Route: 065
     Dates: start: 20230505, end: 20230505
  23. DOXORUBICIN HYDROCHLORIDE [Concomitant]
     Active Substance: DOXORUBICIN HYDROCHLORIDE
     Route: 065
     Dates: start: 20230526, end: 20230526
  24. DOXORUBICIN HYDROCHLORIDE [Concomitant]
     Active Substance: DOXORUBICIN HYDROCHLORIDE
     Route: 065
     Dates: start: 20230616, end: 20230616
  25. DOXORUBICIN HYDROCHLORIDE [Concomitant]
     Active Substance: DOXORUBICIN HYDROCHLORIDE
     Route: 065
     Dates: start: 20230707, end: 20230707
  26. DOXORUBICIN HYDROCHLORIDE [Concomitant]
     Active Substance: DOXORUBICIN HYDROCHLORIDE
     Route: 065
     Dates: start: 20230728, end: 20230728
  27. PREDNISOLONE [Concomitant]
     Active Substance: PREDNISOLONE
     Indication: Diffuse large B-cell lymphoma
     Dosage: 100 MILLIGRAM, QD
     Route: 048
     Dates: start: 20230414, end: 20230418
  28. PREDNISOLONE [Concomitant]
     Active Substance: PREDNISOLONE
     Dosage: 100 MILLIGRAM, QD
     Route: 048
     Dates: start: 20230505, end: 20230509
  29. PREDNISOLONE [Concomitant]
     Active Substance: PREDNISOLONE
     Route: 048
     Dates: start: 20230526, end: 20230530
  30. PREDNISOLONE [Concomitant]
     Active Substance: PREDNISOLONE
     Route: 048
     Dates: start: 20230616, end: 20230620
  31. PREDNISOLONE [Concomitant]
     Active Substance: PREDNISOLONE
     Route: 048
     Dates: start: 20230707, end: 20230711
  32. PREDNISOLONE [Concomitant]
     Active Substance: PREDNISOLONE
     Route: 048
     Dates: start: 20230728, end: 20230801
  33. FILGRASTIM [Concomitant]
     Active Substance: FILGRASTIM
     Dosage: UNK
  34. METHOTREXATE [Concomitant]
     Active Substance: METHOTREXATE
     Dosage: 15MG/BODY/DAY
     Dates: start: 20230426, end: 20230426
  35. METHOTREXATE [Concomitant]
     Active Substance: METHOTREXATE
     Dosage: 15MG/BODY/DAY
     Dates: start: 20230606, end: 20230606
  36. METHOTREXATE [Concomitant]
     Active Substance: METHOTREXATE
     Dosage: 15MG/BODY/DAY
     Dates: start: 20230627, end: 20230627
  37. METHOTREXATE [Concomitant]
     Active Substance: METHOTREXATE
     Dosage: 15MG/BODY/DAY
     Dates: start: 20230718, end: 20230718
  38. CYTARABINE [Concomitant]
     Active Substance: CYTARABINE
     Dosage: 40MG/BODY/DAY
     Dates: start: 20230426, end: 20230426
  39. CYTARABINE [Concomitant]
     Active Substance: CYTARABINE
     Dosage: 40MG/BODY/DAY
     Dates: start: 20230606, end: 20230606
  40. CYTARABINE [Concomitant]
     Active Substance: CYTARABINE
     Dosage: 40MG/BODY/DAY
     Dates: start: 20230627, end: 20230627
  41. CYTARABINE [Concomitant]
     Active Substance: CYTARABINE
     Dosage: 40MG/BODY/DAY
     Dates: start: 20230718, end: 20230718

REACTIONS (2)
  - Respiratory muscle weakness [Not Recovered/Not Resolved]
  - Ejection fraction decreased [Unknown]

NARRATIVE: CASE EVENT DATE: 20231218
